FAERS Safety Report 11284291 (Version 2)
Quarter: 2015Q3

REPORT INFORMATION
  Report Type: Spontaneous
  Country: US (occurrence: US)
  Receive Date: 20150720
  Receipt Date: 20150812
  Transmission Date: 20151125
  Serious: No
  Sender: FDA-Public Use
  Company Number: US-BAYER-2015-373722

PATIENT
  Age: 26 Year
  Sex: Female

DRUGS (1)
  1. MIRENA [Suspect]
     Active Substance: LEVONORGESTREL
     Indication: CONTRACEPTION
     Dosage: 20 MCG/24HR, CONT
     Route: 015
     Dates: start: 20131212, end: 20141218

REACTIONS (5)
  - Acne [Not Recovered/Not Resolved]
  - Alopecia [None]
  - Scar [Not Recovered/Not Resolved]
  - Adverse reaction [None]
  - Feeling of despair [None]

NARRATIVE: CASE EVENT DATE: 2014
